FAERS Safety Report 10672177 (Version 1)
Quarter: 2014Q4

REPORT INFORMATION
  Report Type: Spontaneous
  Country: None (occurrence: None)
  Receive Date: 20141222
  Receipt Date: 20141222
  Transmission Date: 20150529
  Serious: Yes (Disabling)
  Sender: FDA-Public Use
  Company Number: None

PATIENT
  Age: 39 Year
  Sex: Female
  Weight: 77.11 kg

DRUGS (1)
  1. XARELTO [Suspect]
     Active Substance: RIVAROXABAN
     Indication: DEEP VEIN THROMBOSIS
     Dosage: 15MG; AFTER 3 WEEKS 20MG,  15MG 2X; 20MG 1X TAKEN MY MOUTH
     Route: 048
     Dates: start: 20140707, end: 20140831

REACTIONS (6)
  - Hypersensitivity [None]
  - Dizziness [None]
  - Condition aggravated [None]
  - Malaise [None]
  - Respiratory disorder [None]
  - Fatigue [None]

NARRATIVE: CASE EVENT DATE: 20140707
